FAERS Safety Report 19477303 (Version 1)
Quarter: 2021Q2

REPORT INFORMATION
  Report Type: Spontaneous
  Country: US (occurrence: US)
  Receive Date: 20210630
  Receipt Date: 20210630
  Transmission Date: 20210717
  Serious: No
  Sender: FDA-Public Use
  Company Number: None

PATIENT
  Age: 58 Year
  Sex: Male
  Weight: 162 kg

DRUGS (1)
  1. AVIBACTAM/CEFTAZIDIME (CEFTAZIDIME 2GM/AVIBACTAM 0.5GM/VIAL INJ) [Suspect]
     Active Substance: AVIBACTAM SODIUM\CEFTAZIDIME
     Indication: INFECTION
     Route: 042
     Dates: start: 20210624, end: 20210627

REACTIONS (4)
  - Rash [None]
  - Pulmonary congestion [None]
  - Infusion site pain [None]
  - Pruritus [None]

NARRATIVE: CASE EVENT DATE: 20210627
